FAERS Safety Report 6174236-6 (Version None)
Quarter: 2009Q2

REPORT INFORMATION
  Report Type: 
  Country: None (occurrence: None)
  Receive Date: 20090430
  Receipt Date: 20080516
  Transmission Date: 20091009
  Serious: No
  Sender: FDA-Public Use
  Company Number: US-ASTRAZENECA-2008UW05596

PATIENT
  Age: 41 Year
  Sex: Female
  Weight: 74.8 kg

DRUGS (3)
  1. NEXIUM [Suspect]
     Indication: GASTROOESOPHAGEAL REFLUX DISEASE
     Route: 048
  2. LEVOTHYROXINE SODIUM [Concomitant]
  3. MULTI-VITAMIN [Concomitant]

REACTIONS (3)
  - DRUG EXPOSURE DURING PREGNANCY [None]
  - GASTROINTESTINAL INFLAMMATION [None]
  - GASTROOESOPHAGEAL REFLUX DISEASE [None]
